FAERS Safety Report 6904676-6 (Version None)
Quarter: 2010Q3

REPORT INFORMATION
  Report Type: 
  Country: None (occurrence: None)
  Receive Date: 20100804
  Receipt Date: 20090630
  Transmission Date: 20110219
  Serious: No
  Sender: FDA-Public Use
  Company Number: US-PFIZER INC-2009206546

PATIENT
  Age: 24 Year
  Sex: Male
  Weight: 73.469 kg

DRUGS (2)
  1. LYRICA [Suspect]
     Indication: ANXIETY
     Dosage: 50 MG IN THE DAY AND 100 MG AT BEDTIME
     Dates: start: 20090403, end: 20090427
  2. DIAZEPAM [Concomitant]
     Dosage: 5 MG, 3X/DAY

REACTIONS (4)
  - ANXIETY [None]
  - MUSCLE TIGHTNESS [None]
  - MYALGIA [None]
  - OEDEMA PERIPHERAL [None]
